FAERS Safety Report 6237593-8 (Version None)
Quarter: 2009Q2

REPORT INFORMATION
  Report Type: 
  Country: None (occurrence: None)
  Receive Date: 20090619
  Receipt Date: 20090505
  Transmission Date: 20091009
  Serious: Yes (Other)
  Sender: FDA-Public Use
  Company Number: US-MERCK-0906USA02708

PATIENT
  Age: 65 Year
  Sex: Female

DRUGS (7)
  1. DECADRON [Suspect]
     Route: 048
  2. DECADRON [Suspect]
     Route: 048
  3. REVLIMID [Suspect]
     Indication: MULTIPLE MYELOMA
     Route: 048
     Dates: start: 20090303
  4. ASPIRIN [Concomitant]
     Route: 065
  5. NEUPOGEN [Concomitant]
     Route: 065
     Dates: start: 20081204
  6. TOPROL-XL [Concomitant]
     Indication: HYPERTENSION
     Route: 065
  7. TOPROL-XL [Concomitant]
     Route: 065

REACTIONS (8)
  - BLOOD CREATININE INCREASED [None]
  - BLOOD POTASSIUM DECREASED [None]
  - CONSTIPATION [None]
  - HYPOTENSION [None]
  - NAUSEA [None]
  - NEUTROPHIL COUNT DECREASED [None]
  - VISUAL IMPAIRMENT [None]
  - WHITE BLOOD CELL COUNT DECREASED [None]
